FAERS Safety Report 7552700-2 (Version None)
Quarter: 2011Q2

REPORT INFORMATION
  Report Type: 
  Country: None (occurrence: None)
  Receive Date: 20110616
  Receipt Date: 20110419
  Transmission Date: 20111010
  Serious: No
  Sender: FDA-Public Use
  Company Number: US-ABBOTT-11P-163-0720195-00

PATIENT
  Sex: Male
  Weight: 81.72 kg

DRUGS (1)
  1. TRILIPIX [Suspect]
     Indication: BLOOD TRIGLYCERIDES INCREASED
     Route: 048
     Dates: start: 20110311, end: 20110314

REACTIONS (5)
  - NAUSEA [None]
  - DIARRHOEA [None]
  - BACK PAIN [None]
  - HEADACHE [None]
  - UPPER RESPIRATORY TRACT INFECTION [None]
